FAERS Safety Report 11758353 (Version 1)
Quarter: 2015Q4

REPORT INFORMATION
  Report Type: Spontaneous
  Country: US (occurrence: US)
  Receive Date: 20151120
  Receipt Date: 20151120
  Transmission Date: 20160304
  Serious: No
  Sender: FDA-Public Use
  Company Number: US-PFIZER INC-2015362449

PATIENT
  Age: 63 Year
  Sex: Female

DRUGS (1)
  1. SUTENT [Suspect]
     Active Substance: SUNITINIB MALATE
     Indication: RENAL CELL CARCINOMA
     Dosage: 37.5 MG,  (25 MG TAKE 1 CAPSULE BY MOUTH DAILY (TOGETHER WITH 12.5 MG)
     Route: 048
     Dates: start: 201403

REACTIONS (1)
  - Dysgeusia [Unknown]
